FAERS Safety Report 8360110-3 (Version None)
Quarter: 2012Q2

REPORT INFORMATION
  Report Type: 
  Country: None (occurrence: None)
  Receive Date: 20120515
  Receipt Date: 20110613
  Transmission Date: 20120825
  Serious: No
  Sender: FDA-Public Use
  Company Number: US-ALEXION-A201100858

PATIENT
  Sex: Female
  Weight: 61.678 kg

DRUGS (11)
  1. COUMADIN [Concomitant]
     Indication: VENOUS THROMBOSIS LIMB
     Dosage: QD, AS DIRECTED
  2. DIGOXIN [Concomitant]
     Dosage: UNK
  3. RENVELA [Concomitant]
     Dosage: 2 MEALS
  4. SOLIRIS [Suspect]
     Indication: PAROXYSMAL NOCTURNAL HAEMOGLOBINURIA
     Dosage: 900 MG Q2W
     Route: 042
     Dates: start: 20050801
  5. PREDNISONE [Concomitant]
     Dosage: 10 MG, QD
  6. FOLIC ACID [Concomitant]
     Dosage: 2 MG, QD
  7. VITAMIN D [Concomitant]
     Dosage: 1000 QD
  8. TYLENOL (CAPLET) [Concomitant]
     Dosage: UNK
  9. ATIVAN [Concomitant]
     Dosage: UNK
  10. DANAZOL [Concomitant]
     Dosage: 200 MG, BID
  11. ARANESP [Concomitant]
     Dosage: 300 MCG Q2W WITH TRANSFUSIONS AS NEEDED

REACTIONS (3)
  - CONTUSION [None]
  - HAEMOGLOBIN DECREASED [None]
  - LACERATION [None]
